FAERS Safety Report 18743481 (Version 1)
Quarter: 2021Q1

REPORT INFORMATION
  Report Type: Spontaneous
  Country: CA (occurrence: CA)
  Receive Date: 20210115
  Receipt Date: 20210115
  Transmission Date: 20210419
  Serious: Yes (Other)
  Sender: FDA-Public Use
  Company Number: CA-UNITED THERAPEUTICS-UNT-2020-020681

PATIENT
  Age: 64 Year
  Sex: Female

DRUGS (2)
  1. REMODULIN [Suspect]
     Active Substance: TREPROSTINIL
     Indication: PULMONARY ARTERIAL HYPERTENSION
     Dosage: 0.0697 ?G/KG, CONTINUING
     Route: 041
     Dates: start: 20190122
  2. REMODULIN [Suspect]
     Active Substance: TREPROSTINIL
     Dosage: 0.0546 ?G/KG, CONTINUING
     Route: 041

REACTIONS (9)
  - Pain in extremity [Unknown]
  - Syncope [Recovered/Resolved]
  - Back pain [Not Recovered/Not Resolved]
  - Heart rate irregular [Not Recovered/Not Resolved]
  - Atrial fibrillation [Not Recovered/Not Resolved]
  - Blood pressure abnormal [Not Recovered/Not Resolved]
  - Pain [Unknown]
  - Chromaturia [Unknown]
  - Flank pain [Not Recovered/Not Resolved]

NARRATIVE: CASE EVENT DATE: 20201225
